FAERS Safety Report 7395527-7 (Version None)
Quarter: 2011Q2

REPORT INFORMATION
  Report Type: 
  Country: None (occurrence: None)
  Receive Date: 20110405
  Receipt Date: 20110401
  Transmission Date: 20111010
  Serious: Yes (Hospitalization)
  Sender: FDA-Public Use
  Company Number: JP-ABBOTT-11P-087-0710262-00

PATIENT
  Sex: Female

DRUGS (2)
  1. CEFZON [Suspect]
     Indication: INFLUENZA
     Route: 048
     Dates: start: 20110125
  2. TAMIFLU [Suspect]
     Indication: INFLUENZA
     Route: 048

REACTIONS (1)
  - HEPATIC FUNCTION ABNORMAL [None]
